FAERS Safety Report 24237368 (Version 2)
Quarter: 2024Q3

REPORT INFORMATION
  Report Type: Spontaneous
  Country: US (occurrence: US)
  Receive Date: 20240822
  Receipt Date: 20240901
  Transmission Date: 20241017
  Serious: Yes (Disabling)
  Sender: BRISTOL MYERS SQUIBB
  Company Number: US-BRISTOL-MYERS SQUIBB COMPANY-2024-133255

PATIENT
  Age: 56 Year
  Sex: Male

DRUGS (4)
  1. TRIAMCINOLONE ACETONIDE [Suspect]
     Active Substance: TRIAMCINOLONE ACETONIDE
     Indication: Back pain
     Dosage: INTRALAMINAR
  2. TRIAMCINOLONE ACETONIDE [Suspect]
     Active Substance: TRIAMCINOLONE ACETONIDE
     Indication: Vertebral lesion
  3. LIDOCAINE [Suspect]
     Active Substance: LIDOCAINE
     Indication: Back pain
     Dosage: 3 CC OF 1% LIDOCAINE + 5 CC OF NORMAL SALINE
  4. LIDOCAINE [Suspect]
     Active Substance: LIDOCAINE
     Indication: Vertebral lesion

REACTIONS (2)
  - Anxiety disorder [Recovered/Resolved]
  - Off label use [Unknown]
